FAERS Safety Report 23074689 (Version 1)
Quarter: 2023Q4

REPORT INFORMATION
  Report Type: Spontaneous
  Country: US (occurrence: None)
  Receive Date: 20231017
  Receipt Date: 20231017
  Transmission Date: 20240110
  Serious: Yes (Death)
  Sender: FDA-Public Use
  Company Number: None

PATIENT
  Age: 70 Year
  Sex: Male

DRUGS (3)
  1. BIKTARVY [Suspect]
     Active Substance: BICTEGRAVIR SODIUM\EMTRICITABINE\TENOFOVIR ALAFENAMIDE FUMARATE
     Indication: HIV infection
     Dosage: FREQUENCY : DAILY;?
     Route: 048
  2. ESCITALOPRAM [Concomitant]
     Active Substance: ESCITALOPRAM OXALATE
  3. TAMSULOSIN [Concomitant]
     Active Substance: TAMSULOSIN

REACTIONS (1)
  - Death [None]

NARRATIVE: CASE EVENT DATE: 20230909
